FAERS Safety Report 5825378-3 (Version None)
Quarter: 2008Q3

REPORT INFORMATION
  Report Type: 
  Country: None (occurrence: None)
  Receive Date: 20080725
  Receipt Date: 20080725
  Transmission Date: 20090109
  Serious: No
  Sender: FDA-Public Use
  Company Number: None

PATIENT
  Age: 43 Year
  Sex: Female
  Weight: 86.1834 kg

DRUGS (1)
  1. LEVAQUIN [Suspect]
     Indication: ULCER
     Dates: start: 20080515, end: 20080520

REACTIONS (4)
  - ARTHRALGIA [None]
  - ASTHENIA [None]
  - MALAISE [None]
  - MYALGIA [None]
